FAERS Safety Report 12120604 (Version 1)
Quarter: 2016Q1

REPORT INFORMATION
  Report Type: Spontaneous
  Country: US (occurrence: US)
  Receive Date: 20160226
  Receipt Date: 20160226
  Transmission Date: 20160526
  Serious: No
  Sender: FDA-Public Use
  Company Number: US-ALLERGAN-1404618US

PATIENT
  Age: 62 Year
  Sex: Male

DRUGS (1)
  1. REFRESH OPTIVE [Suspect]
     Active Substance: CARBOXYMETHYLCELLULOSE SODIUM\GLYCERIN
     Indication: EYE IRRITATION
     Dosage: 2 GTT, UNK
     Route: 047
     Dates: start: 20140308, end: 20140309

REACTIONS (1)
  - Eye swelling [Not Recovered/Not Resolved]
